FAERS Safety Report 8972349 (Version 3)
Quarter: 2013Q2

REPORT INFORMATION
  Report Type: Spontaneous
  Country: SE (occurrence: SE)
  Receive Date: 20121218
  Receipt Date: 20130628
  Transmission Date: 20140414
  Serious: Yes (Hospitalization, Other)
  Sender: FDA-Public Use
  Company Number: SE-ROCHE-1164623

PATIENT
  Sex: Female
  Weight: 65 kg

DRUGS (12)
  1. XOLAIR [Suspect]
     Indication: PRODUCT USED FOR UNKNOWN INDICATION
     Route: 065
  2. SINGULAIR [Concomitant]
  3. SYMBICORT [Concomitant]
  4. FLUTIDE NASAL [Concomitant]
  5. AERIUS [Concomitant]
  6. VALTREX [Concomitant]
  7. SPECTRAMOX [Concomitant]
  8. BETAPRED [Concomitant]
  9. OPATANOL [Concomitant]
  10. PYRIDOXIN [Concomitant]
  11. OMEPRAZOLE [Concomitant]
  12. PRIMPERAN (METOCLOPRAMIDE HYDROCHLORIDE) [Concomitant]

REACTIONS (2)
  - Vomiting [Unknown]
  - Exposure during pregnancy [Unknown]
